FAERS Safety Report 9207740 (Version 2)
Quarter: 2014Q1

REPORT INFORMATION
  Report Type: Spontaneous
  Country: US (occurrence: US)
  Receive Date: 20130403
  Receipt Date: 20140131
  Transmission Date: 20141002
  Serious: Yes (Hospitalization, Other)
  Sender: FDA-Public Use
  Company Number: US-BAYER-2013-040432

PATIENT
  Sex: Female

DRUGS (18)
  1. YAZ [Suspect]
     Dosage: UNK
     Dates: start: 2000
  2. YASMIN [Suspect]
     Dosage: UNK
     Dates: start: 2000
  3. OCELLA [Suspect]
     Dosage: UNK
     Dates: start: 2000
  4. CLARINEX [DESLORATADINE] [Concomitant]
     Dosage: 5 MG, 1 DAILY
     Route: 048
  5. HYDROXYZINE [Concomitant]
  6. PRILOSEC [Concomitant]
     Route: 048
  7. TRI-LUMA [Concomitant]
     Route: 061
  8. TRETINOIN [Concomitant]
     Route: 061
  9. GUAIFENESIN [Concomitant]
     Route: 048
  10. SIMETHICONE [Concomitant]
     Route: 048
  11. FLUTICASONE [Concomitant]
     Dosage: 50 MCG
     Route: 045
  12. QVAR [Concomitant]
     Dosage: 80 MCG
     Route: 045
  13. PROAIR HFA [Concomitant]
     Dosage: 90 MCG
     Route: 045
  14. MORPHINE [Concomitant]
  15. REGLAN [Concomitant]
  16. TORADOL [Concomitant]
  17. ACETAMINOPHEN W/CODEINE [Concomitant]
  18. IBUPROFEN [Concomitant]
     Dosage: 400 MG, UNK

REACTIONS (8)
  - Cholecystitis [None]
  - Gallbladder disorder [None]
  - Injury [None]
  - Emotional distress [None]
  - Pain [None]
  - General physical health deterioration [None]
  - Anxiety [None]
  - Pain [None]
